FAERS Safety Report 9191179 (Version 2)
Quarter: 2013Q2

REPORT INFORMATION
  Report Type: Report from Study
  Country: US (occurrence: US)
  Receive Date: 20130326
  Receipt Date: 20130529
  Transmission Date: 20140414
  Serious: Yes (Death, Hospitalization)
  Sender: FDA-Public Use
  Company Number: US-ROCHE-1204802

PATIENT
  Age: 68 Year
  Sex: Female
  Weight: 79.45 kg

DRUGS (2)
  1. XELODA [Suspect]
     Indication: BREAST CANCER METASTATIC
     Route: 048
     Dates: start: 20130210
  2. ARIMIDEX [Concomitant]
     Indication: BREAST CANCER METASTATIC
     Route: 048

REACTIONS (7)
  - Disease progression [Fatal]
  - Cerebrovascular accident [Recovered/Resolved]
  - Convulsion [Recovered/Resolved]
  - Hypoaesthesia [Not Recovered/Not Resolved]
  - Dehydration [Recovered/Resolved]
  - Paraesthesia [Not Recovered/Not Resolved]
  - Excessive skin [Not Recovered/Not Resolved]
